FAERS Safety Report 5382672-0 (Version None)
Quarter: 2007Q3

REPORT INFORMATION
  Report Type: 
  Country: None (occurrence: None)
  Receive Date: 20070703
  Receipt Date: 20070703
  Transmission Date: 20080115
  Serious: Yes (Hospitalization)
  Sender: FDA-Public Use
  Company Number: None

PATIENT
  Sex: Female
  Weight: 52.7 kg

DRUGS (2)
  1. CARBOPLATIN [Suspect]
     Dosage: 418 MG
     Dates: end: 20070614
  2. TAXOL [Suspect]
     Dosage: 252 MG
     Dates: end: 20070614

REACTIONS (5)
  - ABDOMINAL PAIN [None]
  - DEHYDRATION [None]
  - INTESTINAL OBSTRUCTION [None]
  - NAUSEA [None]
  - SCAN ABDOMEN ABNORMAL [None]
